FAERS Safety Report 23388708 (Version 1)
Quarter: 2024Q1

REPORT INFORMATION
  Report Type: Spontaneous
  Country: US (occurrence: None)
  Receive Date: 20240110
  Receipt Date: 20240110
  Transmission Date: 20240410
  Serious: Yes (Other)
  Sender: FDA-Public Use
  Company Number: None

PATIENT
  Age: 61 Year
  Sex: Female

DRUGS (1)
  1. ACTEMRA [Suspect]
     Active Substance: TOCILIZUMAB
     Indication: Psoriatic arthropathy
     Dosage: 162 MG  EVERY OTHER WEEK SUBCUANEOUS?
     Route: 058
     Dates: start: 20231006, end: 20231103

REACTIONS (7)
  - Brain fog [None]
  - Loss of personal independence in daily activities [None]
  - Blood calcium decreased [None]
  - Vitamin D decreased [None]
  - Palpitations [None]
  - Insomnia [None]
  - Therapy cessation [None]

NARRATIVE: CASE EVENT DATE: 20240110
